FAERS Safety Report 7624014-3 (Version None)
Quarter: 2011Q3

REPORT INFORMATION
  Report Type: 
  Country: None (occurrence: None)
  Receive Date: 20110720
  Receipt Date: 20110713
  Transmission Date: 20111222
  Serious: Yes (Disabling, Other)
  Sender: FDA-Public Use
  Company Number: US-MERCK-1107USA01787

PATIENT
  Age: 60 Year
  Sex: Female

DRUGS (1)
  1. FOSAMAX [Suspect]
     Route: 048
     Dates: start: 20030101

REACTIONS (4)
  - GAIT DISTURBANCE [None]
  - PAIN IN EXTREMITY [None]
  - FEMUR FRACTURE [None]
  - FOOT FRACTURE [None]
